FAERS Safety Report 7775300-8 (Version None)
Quarter: 2011Q3

REPORT INFORMATION
  Report Type: 
  Country: None (occurrence: None)
  Receive Date: 20110923
  Receipt Date: 20110916
  Transmission Date: 20111222
  Serious: Yes (Other)
  Sender: FDA-Public Use
  Company Number: US-ABBOTT-11P-163-0734298-00

PATIENT
  Sex: Female
  Weight: 77.18 kg

DRUGS (24)
  1. PRAVASTATIN [Concomitant]
     Indication: PRODUCT USED FOR UNKNOWN INDICATION
  2. PRILOSEC [Concomitant]
     Indication: PRODUCT USED FOR UNKNOWN INDICATION
  3. HYDROXYCHLOROQUINE SULFATE [Concomitant]
     Indication: PRODUCT USED FOR UNKNOWN INDICATION
  4. ALBUTEROL [Concomitant]
     Indication: PRODUCT USED FOR UNKNOWN INDICATION
     Route: 055
  5. FLEXERIL [Concomitant]
     Indication: PRODUCT USED FOR UNKNOWN INDICATION
  6. CHANTIX [Concomitant]
     Indication: PRODUCT USED FOR UNKNOWN INDICATION
  7. ALBUTEROL [Concomitant]
     Indication: PRODUCT USED FOR UNKNOWN INDICATION
  8. HYDROCODONE [Concomitant]
     Indication: PRODUCT USED FOR UNKNOWN INDICATION
     Dosage: 5/500, 1 IN 8 HOURS
  9. HUMIRA [Suspect]
     Indication: RHEUMATOID ARTHRITIS
     Route: 058
     Dates: start: 20061101, end: 20080801
  10. MELOXICAM [Concomitant]
     Indication: PRODUCT USED FOR UNKNOWN INDICATION
  11. CELEBREX [Concomitant]
     Indication: PRODUCT USED FOR UNKNOWN INDICATION
  12. GLIPIZIDE [Concomitant]
     Indication: PRODUCT USED FOR UNKNOWN INDICATION
  13. PANTOPRAZOLE [Concomitant]
     Indication: PRODUCT USED FOR UNKNOWN INDICATION
  14. PROTONIX [Concomitant]
     Indication: PRODUCT USED FOR UNKNOWN INDICATION
  15. OMNARIS [Concomitant]
     Indication: PRODUCT USED FOR UNKNOWN INDICATION
  16. HUMIRA [Suspect]
     Route: 058
     Dates: start: 20090101, end: 20091001
  17. PLAQUENIL [Concomitant]
     Indication: PRODUCT USED FOR UNKNOWN INDICATION
  18. ACTOS [Concomitant]
     Indication: PRODUCT USED FOR UNKNOWN INDICATION
     Dosage: 30 MG DAILY
  19. PREDNISONE [Concomitant]
     Indication: PRODUCT USED FOR UNKNOWN INDICATION
     Dosage: ONE MORE DAY TO COMPLETE TAPERING COURSE
  20. VICODIN [Concomitant]
     Indication: PRODUCT USED FOR UNKNOWN INDICATION
  21. FLU VACCINE [Concomitant]
     Indication: PRODUCT USED FOR UNKNOWN INDICATION
  22. LEXAPRO [Concomitant]
     Indication: PRODUCT USED FOR UNKNOWN INDICATION
     Dosage: 1 1/2 TABLETS PER DAY
  23. PRAVASTATIN [Concomitant]
  24. GLUCOTROL XL [Concomitant]
     Indication: PRODUCT USED FOR UNKNOWN INDICATION

REACTIONS (81)
  - PRODUCTIVE COUGH [None]
  - MUSCULAR WEAKNESS [None]
  - SNORING [None]
  - ABDOMINAL PAIN UPPER [None]
  - SINUSITIS [None]
  - HEADACHE [None]
  - DYSPNOEA [None]
  - POLLAKIURIA [None]
  - HYPERTENSION [None]
  - MUSCULOSKELETAL STIFFNESS [None]
  - TENDONITIS [None]
  - BACK PAIN [None]
  - GROIN PAIN [None]
  - LIMB DISCOMFORT [None]
  - MOOD SWINGS [None]
  - HAEMORRHOIDAL HAEMORRHAGE [None]
  - NASAL POLYPS [None]
  - ANKLE FRACTURE [None]
  - NEOPLASM MALIGNANT [None]
  - NASAL CONGESTION [None]
  - ANXIETY [None]
  - GASTROOESOPHAGEAL REFLUX DISEASE [None]
  - HIATUS HERNIA [None]
  - SINUS CONGESTION [None]
  - TEMPOROMANDIBULAR JOINT SYNDROME [None]
  - PARAESTHESIA [None]
  - MEDICAL DEVICE REMOVAL [None]
  - ARTHROPATHY [None]
  - WEIGHT INCREASED [None]
  - GASTRITIS [None]
  - ABDOMINAL PAIN [None]
  - UTERINE LEIOMYOMA [None]
  - ASTHENIA [None]
  - NECK PAIN [None]
  - GRIP STRENGTH DECREASED [None]
  - MUSCULOSKELETAL CHEST PAIN [None]
  - SOMNOLENCE [None]
  - DIZZINESS [None]
  - FUNGAL INFECTION [None]
  - UPPER-AIRWAY COUGH SYNDROME [None]
  - DYSPNOEA EXERTIONAL [None]
  - DEPRESSION [None]
  - DYSLIPIDAEMIA [None]
  - POOR QUALITY SLEEP [None]
  - ABDOMINAL DISCOMFORT [None]
  - NASAL MUCOSAL DISORDER [None]
  - EYE DISORDER [None]
  - GAIT DISTURBANCE [None]
  - HYPOAESTHESIA [None]
  - COUGH [None]
  - RHEUMATOID ARTHRITIS [None]
  - JOINT ARTHROPLASTY [None]
  - LUNG NEOPLASM MALIGNANT [None]
  - OBSTRUCTIVE AIRWAYS DISORDER [None]
  - JOINT STIFFNESS [None]
  - RESTLESS LEGS SYNDROME [None]
  - PALPITATIONS [None]
  - BONE PAIN [None]
  - PAIN IN EXTREMITY [None]
  - INFLUENZA LIKE ILLNESS [None]
  - OCULAR HYPERAEMIA [None]
  - FALL [None]
  - AORTIC ARTERIOSCLEROSIS [None]
  - BRONCHITIS [None]
  - LUNG NEOPLASM [None]
  - EPISTAXIS [None]
  - THROAT IRRITATION [None]
  - OSTEOARTHRITIS [None]
  - EROSIVE DUODENITIS [None]
  - PAIN [None]
  - FATIGUE [None]
  - VISION BLURRED [None]
  - GRANULOMA [None]
  - LYMPHADENOPATHY [None]
  - ARTHRALGIA [None]
  - INSOMNIA [None]
  - TYPE 2 DIABETES MELLITUS [None]
  - GASTROINTESTINAL ARTERIOVENOUS MALFORMATION [None]
  - SYNOVIAL CYST [None]
  - CHRONIC OBSTRUCTIVE PULMONARY DISEASE [None]
  - HEARING IMPAIRED [None]
